FAERS Safety Report 8524974-2 (Version None)
Quarter: 2012Q3

REPORT INFORMATION
  Report Type: 
  Country: None (occurrence: None)
  Receive Date: 20120720
  Receipt Date: 20120718
  Transmission Date: 20120928
  Serious: Yes (Hospitalization)
  Sender: FDA-Public Use
  Company Number: US-FRI-1000037203

PATIENT
  Age: 44 Year
  Sex: Female

DRUGS (4)
  1. OMEPRAZOLE [Suspect]
     Indication: HELICOBACTER INFECTION
  2. AMOXICILLIN [Suspect]
     Indication: HELICOBACTER INFECTION
  3. VIIBRYD [Suspect]
     Indication: DEPRESSION
     Dosage: 10 MG
     Route: 048
     Dates: start: 20120713
  4. METRONIDAZOLE [Suspect]
     Indication: HELICOBACTER INFECTION

REACTIONS (3)
  - CONVULSION [None]
  - VOMITING [None]
  - LOSS OF CONSCIOUSNESS [None]
